FAERS Safety Report 21273548 (Version 1)
Quarter: 2022Q3

REPORT INFORMATION
  Report Type: Spontaneous
  Country: US (occurrence: None)
  Receive Date: 20220830
  Receipt Date: 20220830
  Transmission Date: 20221027
  Serious: No
  Sender: FDA-Public Use
  Company Number: None

PATIENT
  Age: 74 Year
  Sex: Female

DRUGS (1)
  1. COSENTYX [Suspect]
     Active Substance: SECUKINUMAB
     Indication: Psoriatic arthropathy
     Dosage: 150 MG EVERY 4 WEEKS SQ?
     Route: 058
     Dates: start: 20220401

REACTIONS (3)
  - Needle issue [None]
  - Device defective [None]
  - Product dose omission in error [None]

NARRATIVE: CASE EVENT DATE: 20220827
